FAERS Safety Report 15160521 (Version 1)
Quarter: 2018Q3

REPORT INFORMATION
  Report Type: Spontaneous
  Country: BR (occurrence: BR)
  Receive Date: 20180718
  Receipt Date: 20180718
  Transmission Date: 20181010
  Serious: Yes (Death, Hospitalization)
  Sender: FDA-Public Use
  Company Number: BR-INCYTE CORPORATION-2018IN006874

PATIENT

DRUGS (1)
  1. JAKAVI [Suspect]
     Active Substance: RUXOLITINIB
     Indication: PRODUCT USED FOR UNKNOWN INDICATION
     Dosage: UNK
     Route: 065
     Dates: start: 2016

REACTIONS (6)
  - Coagulopathy [Unknown]
  - Death [Fatal]
  - Platelet count decreased [Unknown]
  - Polymerase chain reaction [Unknown]
  - Blood urea increased [Unknown]
  - Lung infiltration [Unknown]

NARRATIVE: CASE EVENT DATE: 201806
